FAERS Safety Report 4548146-1 (Version None)
Quarter: 2004Q4

REPORT INFORMATION
  Report Type: 
  Country: None (occurrence: None)
  Receive Date: 20041227
  Receipt Date: 20040928
  Transmission Date: 20050328
  Serious: No
  Sender: FDA-Public Use
  Company Number: 04P-163-0275006-00

PATIENT
  Age: 68 Year
  Sex: Male
  Weight: 68.4932 kg

DRUGS (3)
  1. HUMIRA [Suspect]
     Indication: RHEUMATOID ARTHRITIS
     Dosage: 40 MG, 1 IN 2 WK, SUBCUTANEOUS
     Route: 058
     Dates: start: 20040401
  2. METHOTREXATE [Concomitant]
  3. CRESTON [Concomitant]

REACTIONS (4)
  - ASTHENIA [None]
  - FUNGAL INFECTION [None]
  - HYPOAESTHESIA [None]
  - NERVOUSNESS [None]
